FAERS Safety Report 5275926-X (Version None)
Quarter: 2007Q1

REPORT INFORMATION
  Report Type: 
  Country: None (occurrence: None)
  Receive Date: 20070326
  Receipt Date: 20070320
  Transmission Date: 20070707
  Serious: Yes (Other)
  Sender: FDA-Public Use
  Company Number: US-ROCHE-488411

PATIENT
  Sex: Male

DRUGS (2)
  1. KLONOPIN [Suspect]
     Indication: DRUG USE FOR UNKNOWN INDICATION
     Dosage: DOSING: 0.5 MG EVERY EVENING
     Route: 065
     Dates: start: 20061220
  2. VALIUM [Suspect]
     Indication: ANXIETY
     Dosage: DOSING: 10 OR 15 MG VALIUM
     Route: 065

REACTIONS (1)
  - MYOCARDIAL INFARCTION [None]
